FAERS Safety Report 17914364 (Version 2)
Quarter: 2020Q2

REPORT INFORMATION
  Report Type: Spontaneous
  Country: US (occurrence: US)
  Receive Date: 20200618
  Receipt Date: 20200622
  Transmission Date: 20200714
  Serious: No
  Sender: FDA-Public Use
  Company Number: US-PFIZER INC-2020236452

PATIENT
  Age: 70 Year
  Sex: Female
  Weight: 79 kg

DRUGS (2)
  1. CELECOXIB. [Suspect]
     Active Substance: CELECOXIB
     Dosage: 200 MG, 2X/DAY (200MG TWICE DAILY BY MOUTH)
     Route: 048
  2. CELECOXIB. [Suspect]
     Active Substance: CELECOXIB
     Indication: OSTEOARTHRITIS
     Dosage: 200 MG, 1X/DAY
     Route: 048
     Dates: start: 2019

REACTIONS (5)
  - Off label use [Unknown]
  - Arthralgia [Recovering/Resolving]
  - Limb discomfort [Not Recovered/Not Resolved]
  - Therapeutic product effect incomplete [Unknown]
  - Burning sensation [Not Recovered/Not Resolved]

NARRATIVE: CASE EVENT DATE: 20200616
